FAERS Safety Report 4383010-2 (Version None)
Quarter: 2004Q2

REPORT INFORMATION
  Report Type: 
  Country: None (occurrence: None)
  Receive Date: 20040527
  Receipt Date: 20040302
  Transmission Date: 20050107
  Serious: Yes (Other)
  Sender: FDA-Public Use
  Company Number: PHEH2004US02162

PATIENT
  Age: 70 Year
  Sex: Male

DRUGS (5)
  1. VOLTAREN [Suspect]
     Indication: POSTOPERATIVE CARE
     Dosage: 1 GTT, Q4H, TOPICAL OPHTH.
     Dates: start: 20040205, end: 20040217
  2. COSOPT [Concomitant]
  3. ALPHAGAN [Concomitant]
  4. TRAVATAN (TRAVOPROST) [Concomitant]
  5. CEFANIDE (CEFORANIDE) [Concomitant]

REACTIONS (2)
  - CORNEAL ULCER [None]
  - DELLEN [None]
